FAERS Safety Report 7788839-6 (Version None)
Quarter: 2011Q3

REPORT INFORMATION
  Report Type: 
  Country: None (occurrence: None)
  Receive Date: 20110930
  Receipt Date: 20110926
  Transmission Date: 20111222
  Serious: Yes (Other)
  Sender: FDA-Public Use
  Company Number: RU-ROCHE-753880

PATIENT
  Sex: Female
  Weight: 76 kg

DRUGS (8)
  1. BLINDED ROACTEMRA [Suspect]
     Indication: RHEUMATOID ARTHRITIS
     Route: 042
     Dates: start: 20100622, end: 20101015
  2. ACID FOLIC [Concomitant]
     Dosage: TDD: 5 MG/WEEK
  3. NIMESULIDE [Concomitant]
  4. BLINDED ROACTEMRA [Suspect]
     Route: 042
     Dates: start: 20110620
  5. BLINDED ROACTEMRA [Suspect]
     Route: 042
     Dates: start: 20100817
  6. METHOTREXATE [Suspect]
     Indication: RHEUMATOID ARTHRITIS
     Route: 048
     Dates: start: 20100622, end: 20101015
  7. BLINDED ROACTEMRA [Suspect]
     Route: 042
     Dates: start: 20100814
  8. BLINDED ROACTEMRA [Suspect]
     Route: 042
     Dates: start: 20101012

REACTIONS (3)
  - ASPARTATE AMINOTRANSFERASE INCREASED [None]
  - ALANINE AMINOTRANSFERASE INCREASED [None]
  - BLOOD BILIRUBIN INCREASED [None]
